FAERS Safety Report 23896738 (Version 1)
Quarter: 2024Q2

REPORT INFORMATION
  Report Type: Report from Study
  Country: US (occurrence: US)
  Receive Date: 20240524
  Receipt Date: 20240524
  Transmission Date: 20240716
  Serious: Yes (Hospitalization)
  Sender: FDA-Public Use
  Company Number: US-ALNYLAM PHARMACEUTICALS, INC.-ALN-2024-002851

PATIENT

DRUGS (1)
  1. AMVUTTRA [Suspect]
     Active Substance: VUTRISIRAN
     Indication: Hereditary neuropathic amyloidosis
     Dosage: UNK
     Route: 065
     Dates: start: 20240516, end: 20240516

REACTIONS (6)
  - Hypervolaemia [Unknown]
  - Hypokalaemia [Unknown]
  - Dyspnoea [Unknown]
  - Frequent bowel movements [Unknown]
  - Fatigue [Unknown]
  - Malaise [Unknown]
